FAERS Safety Report 9207339 (Version 1)
Quarter: 2013Q2

REPORT INFORMATION
  Report Type: Spontaneous
  Country: US (occurrence: None)
  Receive Date: 20130402
  Receipt Date: 20130402
  Transmission Date: 20140414
  Serious: No
  Sender: FDA-Public Use
  Company Number: None

PATIENT
  Age: 86 Year
  Sex: Male

DRUGS (1)
  1. SENSIPAR [Suspect]
     Dosage: EOD
     Route: 048
     Dates: start: 20110317

REACTIONS (3)
  - Cyst [None]
  - Acne [None]
  - Secretion discharge [None]
